FAERS Safety Report 17802664 (Version 1)
Quarter: 2020Q2

REPORT INFORMATION
  Report Type: Spontaneous
  Country: DK (occurrence: DK)
  Receive Date: 20200519
  Receipt Date: 20200519
  Transmission Date: 20200714
  Serious: Yes (Other)
  Sender: FDA-Public Use
  Company Number: DK-TEVA-2020-DK-1235732

PATIENT
  Age: 57 Year
  Sex: Male

DRUGS (2)
  1. PREDNISOLONE. [Suspect]
     Active Substance: PREDNISOLONE
     Indication: EOSINOPHILIC PNEUMONIA
     Dosage: STRENGTH: 10 MG AND 5 MG.,
     Route: 048
     Dates: start: 1989
  2. IMUREL [Concomitant]
     Active Substance: AZATHIOPRINE SODIUM
     Indication: EOSINOPHILIC PNEUMONIA
     Dosage: STRENGTH: 100 MG AND 50 MG.,
     Route: 048
     Dates: start: 1993, end: 201902

REACTIONS (7)
  - Anger [Unknown]
  - Anxiety [Unknown]
  - Pneumonia [Unknown]
  - Memory impairment [Unknown]
  - Insomnia [Unknown]
  - Skin atrophy [Not Recovered/Not Resolved]
  - Depression [Unknown]

NARRATIVE: CASE EVENT DATE: 2010
